FAERS Safety Report 10348049 (Version 1)
Quarter: 2014Q3

REPORT INFORMATION
  Report Type: Spontaneous
  Country: ES (occurrence: ES)
  Receive Date: 20140729
  Receipt Date: 20140729
  Transmission Date: 20150326
  Serious: Yes (Disabling, Other)
  Sender: FDA-Public Use
  Company Number: ES-WATSON-2014-16332

PATIENT
  Age: 73 Year
  Sex: Female

DRUGS (3)
  1. ALENDRONIC ACID (UNKNOWN) [Suspect]
     Active Substance: ALENDRONIC ACID
     Indication: OSTEOPOROSIS POSTMENOPAUSAL
     Dosage: 70 MG, 1/WEEK
     Route: 065
     Dates: start: 200206
  2. FOSAMAX [Suspect]
     Active Substance: ALENDRONATE SODIUM
     Indication: OSTEOPOROSIS POSTMENOPAUSAL
     Dosage: 10 MG, DAILY
     Route: 065
     Dates: start: 199610, end: 200505
  3. CALCIUM CARBONATE W/CALCIUM GLUCONATE [Concomitant]
     Indication: OSTEOPOROSIS POSTMENOPAUSAL
     Dosage: TWO DAILY TABLETS OF 1132 MG CALCIUM GLUCONATE PLUS 875 MG CALCIUM CARBONATE
     Route: 065

REACTIONS (2)
  - Atypical femur fracture [Recovered/Resolved]
  - Osteolysis [Recovered/Resolved]
